FAERS Safety Report 7373629-9 (Version None)
Quarter: 2011Q1

REPORT INFORMATION
  Report Type: 
  Country: None (occurrence: None)
  Receive Date: 20110325
  Receipt Date: 20110228
  Transmission Date: 20110831
  Serious: Yes (Hospitalization, Other)
  Sender: FDA-Public Use
  Company Number: US-BAYER-201032363NA

PATIENT
  Sex: Female
  Weight: 73 kg

DRUGS (16)
  1. YAZ [Suspect]
     Indication: CONTRACEPTION
     Route: 048
     Dates: start: 20010101
  2. TUSSIONEX [Concomitant]
     Dosage: UNK
     Route: 048
  3. BENZONATATE [Concomitant]
     Dosage: 100 MG, UNK
     Route: 048
  4. AZITHROMYCIN [Concomitant]
     Dosage: 500 MG, UNK
     Route: 048
  5. YASMIN [Suspect]
     Indication: CONTRACEPTION
     Route: 048
     Dates: start: 20010101
  6. ASMANEX TWISTHALER [Concomitant]
     Dosage: UNK UNK, QD
     Route: 045
  7. SULFAMETHOXAZOLE AND TRIMETHOPRIM [Concomitant]
     Route: 048
  8. NEXIUM [Concomitant]
     Dosage: 20 MG, UNK
     Route: 048
  9. IBUPROFEN [Concomitant]
     Dosage: 800 MG, TID
     Route: 048
  10. SPIRONOLACTONE [Concomitant]
     Dosage: 25 MG, UNK
     Route: 048
  11. AZITHROMYCIN [Concomitant]
     Dosage: 250 MG, UNK
     Route: 048
  12. ACYCLOVIR ALPHARMA [ACICLOVIR SODIUM] [Concomitant]
     Dosage: 800 MG, UNK
     Route: 048
  13. CIPROFLOXACIN [Concomitant]
     Dosage: 500 MG, UNK
     Route: 048
  14. HYDROCODONE BITARTRATE AND ACETAMINOPHEN [Concomitant]
     Dosage: 5 MG, UNK
     Route: 048
  15. HYDROCODONE BITARTRATE AND ACETAMINOPHEN [Concomitant]
     Dosage: 7.5 MG, UNK
  16. XOPENEX [Concomitant]
     Dosage: UNK UNK, PRN
     Route: 045

REACTIONS (4)
  - GALLBLADDER DISORDER [None]
  - CHOLELITHIASIS [None]
  - PAIN [None]
  - CHOLECYSTITIS CHRONIC [None]
